FAERS Safety Report 20512815 (Version 1)
Quarter: 2022Q1

REPORT INFORMATION
  Report Type: Spontaneous
  Country: CN (occurrence: None)
  Receive Date: 20220224
  Receipt Date: 20220224
  Transmission Date: 20220423
  Serious: Yes (Hospitalization)
  Sender: FDA-Public Use
  Company Number: 2022A078765

PATIENT
  Age: 20 Year
  Sex: Male

DRUGS (1)
  1. DAPAGLIFLOZIN [Suspect]
     Active Substance: DAPAGLIFLOZIN
     Indication: Blood glucose increased
     Route: 048
     Dates: start: 20211201, end: 20220114

REACTIONS (3)
  - Oedema genital [Recovering/Resolving]
  - Dry mouth [Unknown]
  - Chest pain [Unknown]

NARRATIVE: CASE EVENT DATE: 20220114
